FAERS Safety Report 21077678 (Version 1)
Quarter: 2022Q3

REPORT INFORMATION
  Report Type: Spontaneous
  Country: US (occurrence: US)
  Receive Date: 20220713
  Receipt Date: 20220713
  Transmission Date: 20221027
  Serious: No
  Sender: FDA-Public Use
  Company Number: US-PFIZER INC-202200950039

PATIENT
  Age: 79 Year
  Sex: Female

DRUGS (1)
  1. QUINAPRIL [Suspect]
     Active Substance: QUINAPRIL
     Indication: Blood pressure management
     Dosage: UNK

REACTIONS (3)
  - Arthralgia [Unknown]
  - Arthritis [Unknown]
  - Therapeutic product effect incomplete [Unknown]
